FAERS Safety Report 11005941 (Version 1)
Quarter: 2015Q2

REPORT INFORMATION
  Report Type: Spontaneous
  Country: US (occurrence: US)
  Receive Date: 20150409
  Receipt Date: 20150409
  Transmission Date: 20150821
  Serious: No
  Sender: FDA-Public Use
  Company Number: US-ALLERGAN-1421574US

PATIENT
  Age: 54 Year
  Sex: Female

DRUGS (2)
  1. MULTIVITAMIN [Concomitant]
     Active Substance: VITAMINS
  2. LUMIGAN [Suspect]
     Active Substance: BIMATOPROST
     Indication: INTRAOCULAR PRESSURE INCREASED
     Dosage: 2 GTT, QHS
     Route: 047
     Dates: start: 20140924, end: 20141003

REACTIONS (3)
  - Dry eye [Recovered/Resolved]
  - Scleral hyperaemia [Recovered/Resolved]
  - Lacrimation decreased [Recovered/Resolved]

NARRATIVE: CASE EVENT DATE: 20140924
